FAERS Safety Report 9800077 (Version 2)
Quarter: 2014Q1

REPORT INFORMATION
  Report Type: Spontaneous
  Country: US (occurrence: US)
  Receive Date: 20140106
  Receipt Date: 20140106
  Transmission Date: 20141002
  Serious: Yes (Other)
  Sender: FDA-Public Use
  Company Number: US-GILEAD-2010-0032194

PATIENT
  Sex: Male
  Weight: 72.57 kg

DRUGS (29)
  1. LETAIRIS [Suspect]
     Indication: PULMONARY ARTERIAL HYPERTENSION
     Route: 048
     Dates: start: 20100903
  2. ASPIRIN [Concomitant]
     Route: 055
  3. DEMADEX [Concomitant]
  4. ALBUTEROL [Concomitant]
     Route: 055
  5. KLONAPIN [Concomitant]
  6. XALANTAN 0.005% [Concomitant]
  7. SINGULAIR [Concomitant]
  8. MEROPENEM [Concomitant]
  9. ELESTAT 0.5% [Concomitant]
  10. EFFEXOR XR [Concomitant]
  11. SOMA [Concomitant]
  12. PREDNISONE [Concomitant]
     Route: 055
  13. CADUET [Concomitant]
     Route: 055
  14. LANTUS [Concomitant]
     Route: 055
  15. NOVOLOG [Concomitant]
     Route: 055
  16. ACETAMINOPHEN [Concomitant]
     Route: 055
  17. GABAPENTIN [Concomitant]
     Route: 055
  18. ADVAIR [Concomitant]
     Route: 055
  19. FLOMAX [Concomitant]
     Route: 055
  20. MUCOMYST [Concomitant]
     Route: 055
  21. CINNAMON [Concomitant]
     Route: 055
  22. ZETIA [Concomitant]
     Route: 055
  23. ARTHROTEC [Concomitant]
     Route: 055
  24. PERCOCET [Concomitant]
     Route: 055
  25. POTASSIUM [Concomitant]
     Route: 055
  26. PROTONIX [Concomitant]
     Route: 055
  27. GARLIC OIL [Concomitant]
     Route: 055
  28. VITAMIN C [Concomitant]
     Route: 055
  29. MULTIVITAMIN [Concomitant]
     Route: 055

REACTIONS (1)
  - No therapeutic response [Unknown]
